FAERS Safety Report 19608460 (Version 1)
Quarter: 2021Q3

REPORT INFORMATION
  Report Type: Spontaneous
  Country: US (occurrence: US)
  Receive Date: 20210723
  Receipt Date: 20210723
  Transmission Date: 20211014
  Serious: No
  Sender: FDA-Public Use
  Company Number: None

PATIENT
  Age: 21 Year
  Sex: Female
  Weight: 74.25 kg

DRUGS (3)
  1. TEMOZOLOMIDE 5MGX2 @ HS (TAKEN ALONG WITH 100MG AND 20MG) [Concomitant]
     Dates: start: 20210720
  2. TEMOZOLOMIDE. [Suspect]
     Active Substance: TEMOZOLOMIDE
     Route: 048
     Dates: start: 20210720
  3. TEMOZOLOMIDE. [Suspect]
     Active Substance: TEMOZOLOMIDE
     Indication: BRAIN NEOPLASM MALIGNANT
     Route: 048
     Dates: start: 20210720

REACTIONS (1)
  - Seizure [None]

NARRATIVE: CASE EVENT DATE: 20210723
